FAERS Safety Report 8122343-0 (Version None)
Quarter: 2012Q1

REPORT INFORMATION
  Report Type: 
  Country: None (occurrence: None)
  Receive Date: 20120206
  Receipt Date: 20120123
  Transmission Date: 20120608
  Serious: Yes (Death)
  Sender: FDA-Public Use
  Company Number: JPI-P-019478

PATIENT
  Age: 61 Year
  Sex: Male

DRUGS (2)
  1. XYREM [Suspect]
     Indication: FIBROMYALGIA
     Dosage: 4.5 GM (2.25 GM, 2 IN 1 D), ORAL; (TITRATING DOSE), ORAL;  9 GM (4.5 GM, 2 IN 1 D), ORAL
     Route: 048
     Dates: start: 20101030
  2. XYREM [Suspect]
     Indication: FIBROMYALGIA
     Dosage: 4.5 GM (2.25 GM, 2 IN 1 D), ORAL; (TITRATING DOSE), ORAL;  9 GM (4.5 GM, 2 IN 1 D), ORAL
     Route: 048
     Dates: start: 20110824

REACTIONS (5)
  - MIDDLE INSOMNIA [None]
  - INTENTIONAL DRUG MISUSE [None]
  - PALPITATIONS [None]
  - DYSGEUSIA [None]
  - INITIAL INSOMNIA [None]
